FAERS Safety Report 6814479-9 (Version None)
Quarter: 2010Q3

REPORT INFORMATION
  Report Type: 
  Country: None (occurrence: None)
  Receive Date: 20100702
  Receipt Date: 20100628
  Transmission Date: 20110219
  Serious: Yes (Death, Hospitalization)
  Sender: FDA-Public Use
  Company Number: PHEH2010US00998

PATIENT
  Sex: Female

DRUGS (3)
  1. RECLAST [Suspect]
     Dosage: UNK, ONCE/SINGLE USE
     Dates: start: 20081204
  2. RECLAST [Suspect]
     Dosage: ONCE YEARLY
     Route: 042
     Dates: start: 20091211
  3. HYZAAR [Concomitant]
     Dosage: DAILY
     Route: 048

REACTIONS (12)
  - ASTHENIA [None]
  - CARDIAC FAILURE [None]
  - COAGULOPATHY [None]
  - DYSPNOEA [None]
  - FLUID INTAKE REDUCED [None]
  - HEPATIC FAILURE [None]
  - HYPOPHAGIA [None]
  - MALAISE [None]
  - MULTI-ORGAN FAILURE [None]
  - MYOCARDIAL INFARCTION [None]
  - RENAL FAILURE [None]
  - TRAUMATIC LIVER INJURY [None]
